FAERS Safety Report 8440790-4 (Version None)
Quarter: 2012Q2

REPORT INFORMATION
  Report Type: 
  Country: None (occurrence: None)
  Receive Date: 20120615
  Receipt Date: 20120606
  Transmission Date: 20120825
  Serious: Yes (Hospitalization)
  Sender: FDA-Public Use
  Company Number: US-BAYER-2012-056992

PATIENT
  Age: 24 Year
  Sex: Female
  Weight: 54.422 kg

DRUGS (18)
  1. YAZ [Suspect]
     Indication: CONTRACEPTION
     Dosage: UNK
     Dates: start: 20080601, end: 20100801
  2. DROSPIRENONE AND ETHINYL ESTRADIOL [Suspect]
     Indication: ACNE
  3. YAZ [Suspect]
     Indication: ACNE
  4. ASCORBIC ACID [Concomitant]
     Dosage: UNK
     Dates: start: 19860101
  5. MINOCYCLINE [Concomitant]
     Dosage: 50 MG, UNK
     Dates: start: 20100901, end: 20101005
  6. YAZ [Suspect]
     Indication: DYSMENORRHOEA
  7. IBUPROFEN [Concomitant]
     Dosage: UNK
     Dates: start: 20060101, end: 20120101
  8. CLARAVIS [Concomitant]
     Indication: ACNE
     Dosage: 40 MG, UNK
  9. DROSPIRENONE AND ETHINYL ESTRADIOL [Suspect]
     Indication: DYSMENORRHOEA
  10. CITALOPRAM HYDROBROMIDE [Concomitant]
     Indication: DEPRESSION
     Dosage: 20 MG, UNK
  11. ACCUTANE [Concomitant]
     Indication: ACNE
     Dosage: UNK
     Dates: start: 20100929, end: 20101104
  12. CLONAZEPAM [Concomitant]
     Indication: ANXIETY
     Dosage: 0.5 MG, UNK
  13. ALBUTEROL [Concomitant]
     Dosage: UNK
     Dates: start: 20101104
  14. DROSPIRENONE AND ETHINYL ESTRADIOL [Suspect]
     Indication: CONTRACEPTION
     Dosage: UNK
     Dates: start: 20100925, end: 20101104
  15. VENTOLIN HFA [Concomitant]
     Dosage: UNK
     Dates: start: 20100101
  16. CELEXA [Concomitant]
  17. ALBUTEROL [Concomitant]
     Dosage: UNK, PRN
  18. KLONOPIN [Concomitant]

REACTIONS (6)
  - CHEST PAIN [None]
  - TACHYCARDIA [None]
  - TACHYPNOEA [None]
  - PAIN IN EXTREMITY [None]
  - INJURY [None]
  - PULMONARY EMBOLISM [None]
